FAERS Safety Report 7775292-1 (Version None)
Quarter: 2011Q3

REPORT INFORMATION
  Report Type: 
  Country: None (occurrence: None)
  Receive Date: 20110923
  Receipt Date: 20110914
  Transmission Date: 20111222
  Serious: Yes (Other)
  Sender: FDA-Public Use
  Company Number: BR-BRISTOL-MYERS SQUIBB COMPANY-16030314

PATIENT
  Age: 44 Year

DRUGS (5)
  1. STAVUDINE [Suspect]
     Indication: HIV INFECTION
     Dates: start: 20070101, end: 20080301
  2. REYATAZ [Suspect]
     Indication: HIV INFECTION
     Dosage: ALSO IN A DOSE OF 300 MG
     Dates: start: 20070101, end: 20110101
  3. RITONAVIR [Suspect]
     Indication: HIV INFECTION
  4. LAMIVUDINE [Suspect]
     Indication: HIV INFECTION
     Dates: start: 20070101
  5. TENOFOVIR DISOPROXIL FUMARATE [Suspect]
     Indication: HIV INFECTION
     Dates: start: 20080301

REACTIONS (4)
  - ABDOMINAL DISTENSION [None]
  - BLOOD URIC ACID INCREASED [None]
  - NEPHROLITHIASIS [None]
  - RENAL IMPAIRMENT [None]
